FAERS Safety Report 15880712 (Version 2)
Quarter: 2019Q3

REPORT INFORMATION
  Report Type: Spontaneous
  Country: US (occurrence: US)
  Receive Date: 20190128
  Receipt Date: 20190905
  Transmission Date: 20191004
  Serious: No
  Sender: FDA-Public Use
  Company Number: US-BAUSCH-BL-2019-001682

PATIENT
  Age: 54 Year
  Sex: Male
  Weight: 69.01 kg

DRUGS (2)
  1. ZOVIRAX [Suspect]
     Active Substance: ACYCLOVIR
     Route: 061
     Dates: start: 20190114
  2. ZOVIRAX [Suspect]
     Active Substance: ACYCLOVIR
     Indication: ORAL HERPES
     Dosage: FOR YEARS
     Route: 061

REACTIONS (3)
  - Paraesthesia [Recovered/Resolved]
  - Drug ineffective [Unknown]
  - Product quality issue [Unknown]

NARRATIVE: CASE EVENT DATE: 201901
